FAERS Safety Report 7884401 (Version 4)
Quarter: 2016Q1

REPORT INFORMATION
  Report Type: Spontaneous
  Country: US (occurrence: US)
  Receive Date: 20110404
  Receipt Date: 20160203
  Transmission Date: 20160526
  Serious: Yes (Hospitalization, Disabling, Other)
  Sender: FDA-Public Use
  Company Number: US-ASTRAZENECA-2010SE33982

PATIENT
  Age: 24526 Day
  Sex: Female
  Weight: 72.6 kg

DRUGS (6)
  1. TEMAZEPAM. [Concomitant]
     Active Substance: TEMAZEPAM
     Indication: SLEEP DISORDER
     Route: 048
  2. CRESTOR [Suspect]
     Active Substance: ROSUVASTATIN CALCIUM
     Indication: BLOOD CHOLESTEROL INCREASED
     Route: 048
     Dates: start: 2010
  3. CENTRUM SILVER [Concomitant]
     Active Substance: MINERALS\VITAMINS
     Indication: ASTHENIA
     Dosage: 50 AND OVER 1 TABLET ORAL DAILY
     Route: 048
  4. NEXIUM [Suspect]
     Active Substance: ESOMEPRAZOLE MAGNESIUM
     Indication: GASTRITIS
     Route: 048
     Dates: start: 2010
  5. GENERIC ZOCOR [Concomitant]
  6. LISINOPRIL HCTZ [Suspect]
     Active Substance: HYDROCHLOROTHIAZIDE\LISINOPRIL
     Dosage: 10-12-0.5 MG ORAL DAILY
     Route: 048
     Dates: start: 2014

REACTIONS (8)
  - Parkinson^s disease [Unknown]
  - Dyspepsia [Unknown]
  - Heat stroke [Unknown]
  - Pneumonia [Unknown]
  - Cerebrovascular accident [Recovered/Resolved with Sequelae]
  - Influenza [Not Recovered/Not Resolved]
  - Amnesia [Unknown]
  - Drug dose omission [Unknown]

NARRATIVE: CASE EVENT DATE: 20100707
